FAERS Safety Report 4275872-4 (Version None)
Quarter: 2004Q1

REPORT INFORMATION
  Report Type: 
  Country: None (occurrence: None)
  Receive Date: 20040121
  Receipt Date: 20030206
  Transmission Date: 20041129
  Serious: No
  Sender: FDA-Public Use
  Company Number: US-GLAXOSMITHKLINE-A0395869A

PATIENT
  Sex: Female

DRUGS (2)
  1. VALTREX [Suspect]
     Dosage: 1G VARIABLE DOSE
     Route: 048
     Dates: start: 20021102
  2. VIOXX [Concomitant]

REACTIONS (2)
  - NEURALGIA [None]
  - UNEXPECTED THERAPEUTIC DRUG EFFECT [None]
